FAERS Safety Report 17856886 (Version 1)
Quarter: 2020Q2

REPORT INFORMATION
  Report Type: Spontaneous
  Country: US (occurrence: US)
  Receive Date: 20200603
  Receipt Date: 20200603
  Transmission Date: 20200714
  Serious: No
  Sender: FDA-Public Use
  Company Number: US-MAYNE PHARMA-2020MYN000174

PATIENT

DRUGS (2)
  1. FLUOROURACIL. [Suspect]
     Active Substance: FLUOROURACIL
     Indication: ACTINIC KERATOSIS
     Dosage: UNK, BID
     Route: 061
     Dates: start: 20200316, end: 20200320
  2. FLUOROURACIL. [Suspect]
     Active Substance: FLUOROURACIL
     Indication: SKIN PAPILLOMA

REACTIONS (1)
  - Palpitations [Not Recovered/Not Resolved]

NARRATIVE: CASE EVENT DATE: 20200317
